FAERS Safety Report 6458892-0 (Version None)
Quarter: 2009Q4

REPORT INFORMATION
  Report Type: 
  Country: None (occurrence: None)
  Receive Date: 20091127
  Receipt Date: 20091113
  Transmission Date: 20100525
  Serious: Yes (Other)
  Sender: FDA-Public Use
  Company Number: US-BAYER-200939678NA

PATIENT
  Sex: Female

DRUGS (1)
  1. YASMIN [Suspect]
     Indication: DRUG USE FOR UNKNOWN INDICATION
     Dosage: 3 MG OF DROSPIRENONE AND 0.03 MG OF ETHINYL ESTRADIOL
     Route: 048
     Dates: start: 20070901, end: 20071101

REACTIONS (1)
  - CHOLECYSTECTOMY [None]
